FAERS Safety Report 8183183 (Version 2)
Quarter: 2013Q4

REPORT INFORMATION
  Report Type: Report from Study
  Country: MX (occurrence: MX)
  Receive Date: 20111017
  Receipt Date: 20131212
  Transmission Date: 20140711
  Serious: Yes (Death, Hospitalization)
  Sender: FDA-Public Use
  Company Number: PHHY2011MX90267

PATIENT
  Age: 81 Year
  Sex: Male

DRUGS (1)
  1. EXELON [Suspect]
     Dosage: 1 DF, DAILY
     Route: 048
     Dates: start: 201010

REACTIONS (4)
  - Cerebral thrombosis [Fatal]
  - Speech disorder [Fatal]
  - Akinesia [Fatal]
  - Pneumonia [Fatal]
